FAERS Safety Report 9619755 (Version 4)
Quarter: 2014Q1

REPORT INFORMATION
  Report Type: Spontaneous
  Country: IT (occurrence: IT)
  Receive Date: 20131014
  Receipt Date: 20140107
  Transmission Date: 20141002
  Serious: Yes (Other)
  Sender: FDA-Public Use
  Company Number: IT-BAXTER-2013BAX039197

PATIENT
  Age: 42 Year
  Sex: Female

DRUGS (13)
  1. ENDOXAN BAXTER [Suspect]
     Indication: BREAST CANCER
     Route: 042
     Dates: start: 20080916, end: 20081119
  2. FARMORUBICINA [Suspect]
     Indication: BREAST CANCER
     Route: 042
     Dates: start: 20080916, end: 20081119
  3. FARMORUBICINA [Suspect]
     Route: 042
     Dates: start: 20081007
  4. FARMORUBICINA [Suspect]
     Route: 042
     Dates: start: 20081028
  5. FARMORUBICINA [Suspect]
     Route: 042
     Dates: start: 20081119
  6. HERCEPTIN [Suspect]
     Indication: BREAST CANCER
     Route: 042
     Dates: start: 20090513, end: 20090623
  7. HERCEPTIN [Suspect]
     Route: 042
     Dates: start: 20090603
  8. HERCEPTIN [Suspect]
     Route: 042
     Dates: start: 20090623
  9. SOLDESAM [Concomitant]
     Indication: PREMEDICATION
     Route: 042
     Dates: start: 20080916, end: 20081119
  10. SOLDESAM [Concomitant]
     Indication: PRODUCT USED FOR UNKNOWN INDICATION
     Route: 042
     Dates: start: 20090513, end: 20090623
  11. RANIDIL [Concomitant]
     Indication: PREMEDICATION
     Route: 042
     Dates: start: 20080916, end: 20081119
  12. RANIDIL [Concomitant]
     Indication: PRODUCT USED FOR UNKNOWN INDICATION
     Route: 042
     Dates: start: 20090513, end: 20090623
  13. ALOXI [Concomitant]
     Indication: PREMEDICATION
     Route: 042
     Dates: start: 20080916, end: 20081119

REACTIONS (5)
  - Mitral valve incompetence [Recovered/Resolved]
  - Respiratory failure [Recovered/Resolved]
  - Ejection fraction decreased [Recovered/Resolved]
  - Left atrial dilatation [Recovered/Resolved]
  - Systolic dysfunction [Recovered/Resolved]
